FAERS Safety Report 6085582-9 (Version None)
Quarter: 2009Q1

REPORT INFORMATION
  Report Type: 
  Country: None (occurrence: None)
  Receive Date: 20090217
  Receipt Date: 20090217
  Transmission Date: 20090719
  Serious: Yes (Other)
  Sender: FDA-Public Use
  Company Number: None

PATIENT
  Age: 64 Year
  Sex: Male
  Weight: 87.9978 kg

DRUGS (1)
  1. PROPAFENONE HCL [Suspect]
     Indication: TACHYCARDIA
     Dosage: 1 TABLET 3 TIMES / DAY PO
     Route: 048
     Dates: start: 20080815, end: 20081120

REACTIONS (4)
  - ARRHYTHMIA [None]
  - CHEST DISCOMFORT [None]
  - MALAISE [None]
  - PRODUCT QUALITY ISSUE [None]
